FAERS Safety Report 15811475 (Version 5)
Quarter: 2019Q2

REPORT INFORMATION
  Report Type: Spontaneous
  Country: US (occurrence: US)
  Receive Date: 20190111
  Receipt Date: 20190501
  Transmission Date: 20190711
  Serious: No
  Sender: FDA-Public Use
  Company Number: US-BIOGEN-2019BI00680264

PATIENT
  Age: 46 Year
  Sex: Female

DRUGS (3)
  1. TECFIDERA [Suspect]
     Active Substance: DIMETHYL FUMARATE
     Indication: MULTIPLE SCLEROSIS
     Route: 050
     Dates: start: 20181124, end: 20181129
  2. TECFIDERA [Suspect]
     Active Substance: DIMETHYL FUMARATE
     Route: 050
     Dates: start: 20181130, end: 201901
  3. TECFIDERA [Suspect]
     Active Substance: DIMETHYL FUMARATE
     Route: 050
     Dates: start: 201901

REACTIONS (9)
  - Diarrhoea [Recovered/Resolved]
  - Abdominal pain lower [Unknown]
  - Product dose omission [Unknown]
  - Dysphonia [Unknown]
  - Flushing [Not Recovered/Not Resolved]
  - Hepatic enzyme increased [Recovered/Resolved]
  - Rash [Unknown]
  - Eye disorder [Unknown]
  - Rash papular [Recovered/Resolved]

NARRATIVE: CASE EVENT DATE: 20190104
